FAERS Safety Report 18095976 (Version 1)
Quarter: 2020Q3

REPORT INFORMATION
  Report Type: Spontaneous
  Country: AT (occurrence: AT)
  Receive Date: 20200730
  Receipt Date: 20200730
  Transmission Date: 20201103
  Serious: Yes (Life-Threatening, Hospitalization)
  Sender: FDA-Public Use
  Company Number: AT-ALLERGAN-2027587US

PATIENT
  Sex: Male
  Weight: 32 kg

DRUGS (2)
  1. XYDALBA [Suspect]
     Active Substance: DALBAVANCIN HYDROCHLORIDE
     Indication: OSTEOMYELITIS
     Dosage: 1 DF
     Route: 042
     Dates: start: 20200616, end: 20200616
  2. EUSAPRIM [Suspect]
     Active Substance: SULFAMETHOXAZOLE\TRIMETHOPRIM
     Indication: OSTEOMYELITIS
     Dosage: 12 ML, Q12H
     Route: 048
     Dates: start: 20200702, end: 20200709

REACTIONS (8)
  - Pyrexia [Recovering/Resolving]
  - Cardiovascular disorder [Recovering/Resolving]
  - Off label use [Unknown]
  - Rash [Recovering/Resolving]
  - Stevens-Johnson syndrome [Recovering/Resolving]
  - Dysphagia [Recovering/Resolving]
  - Erythema [Recovering/Resolving]
  - Pain [Recovering/Resolving]

NARRATIVE: CASE EVENT DATE: 20200616
